FAERS Safety Report 9720369 (Version 2)
Quarter: 2013Q4

REPORT INFORMATION
  Report Type: Spontaneous
  Country: DE (occurrence: DE)
  Receive Date: 20131129
  Receipt Date: 20131213
  Transmission Date: 20140711
  Serious: Yes (Other)
  Sender: FDA-Public Use
  Company Number: DE-AMGEN-DEUSP2013083271

PATIENT
  Age: 73 Year
  Sex: Male

DRUGS (1)
  1. XGEVA [Suspect]
     Indication: OSTEOPOROSIS
     Dosage: 120 MG, UNK
     Route: 058
     Dates: start: 20120330

REACTIONS (2)
  - Osteonecrosis of jaw [Not Recovered/Not Resolved]
  - Mouth ulceration [Unknown]
